FAERS Safety Report 9977596 (Version 1)
Quarter: 2014Q1

REPORT INFORMATION
  Report Type: Report from Study
  Country: US (occurrence: US)
  Receive Date: 20140306
  Receipt Date: 20140306
  Transmission Date: 20141002
  Serious: No
  Sender: FDA-Public Use
  Company Number: US-ABBVIE-13P-163-1162839-00

PATIENT
  Sex: Female

DRUGS (2)
  1. HUMIRA [Suspect]
     Indication: PSORIATIC ARTHROPATHY
     Dates: start: 20131011
  2. UNKNOWN BIRTH CONTROL PILLS [Concomitant]
     Indication: CONTRACEPTION
     Dosage: 1 TAB DAILY

REACTIONS (2)
  - Injection site pruritus [Unknown]
  - Injection site erythema [Unknown]
